FAERS Safety Report 10677617 (Version 1)
Quarter: 2014Q4

REPORT INFORMATION
  Report Type: Report from Study
  Country: DK (occurrence: DK)
  Receive Date: 20141229
  Receipt Date: 20141229
  Transmission Date: 20150529
  Serious: Yes (Hospitalization)
  Sender: FDA-Public Use
  Company Number: DK-ROCHE-1509924

PATIENT
  Age: 43 Year
  Sex: Male

DRUGS (5)
  1. MOTILIUM [Concomitant]
     Active Substance: DOMPERIDONE
     Dosage: MAX X 3
     Route: 065
     Dates: start: 20111020
  2. INTERLEUKIN 2 [Suspect]
     Active Substance: ALDESLEUKIN
     Indication: RENAL CANCER
     Route: 058
     Dates: start: 20120110
  3. BEVACIZUMAB [Suspect]
     Active Substance: BEVACIZUMAB
     Indication: RENAL CANCER
     Route: 042
     Dates: start: 20120117
  4. INTERFERON ALFA-2B [Suspect]
     Active Substance: INTERFERON ALFA-2B
     Indication: RENAL CANCER
     Route: 058
     Dates: start: 20120110
  5. CONTALGIN [Concomitant]
     Active Substance: MORPHINE SULFATE
     Route: 065
     Dates: start: 20111020

REACTIONS (1)
  - Liver function test abnormal [Recovered/Resolved]

NARRATIVE: CASE EVENT DATE: 20120118
